FAERS Safety Report 8342779-2 (Version None)
Quarter: 2012Q2

REPORT INFORMATION
  Report Type: 
  Country: None (occurrence: None)
  Receive Date: 20120503
  Receipt Date: 20120425
  Transmission Date: 20120825
  Serious: Yes (Other)
  Sender: FDA-Public Use
  Company Number: 2012MA005500

PATIENT
  Sex: Female

DRUGS (27)
  1. HYPROMELLOSE [Concomitant]
  2. FUROSEMIDE [Concomitant]
  3. QUININE SULFATE [Concomitant]
  4. RABEPRAZOLE SODIUM [Concomitant]
  5. ACETYLSALICYLIC ACID SRT [Concomitant]
  6. ACETAMINOPHEN [Concomitant]
  7. GAVISCON [Concomitant]
  8. MOVIPREP [Concomitant]
  9. NAFTIDROFURYL [Concomitant]
  10. ALENDRONIC ACID [Concomitant]
  11. PREDNISOLONE [Concomitant]
  12. CITALOPRAM HYDROBROMIDE [Concomitant]
  13. MORPHINE [Concomitant]
  14. METOCLOPRAMIDE HYDROCHLORIDE [Suspect]
     Indication: ABDOMINAL DISTENSION
     Dosage: 10 MG, PO
     Route: 048
     Dates: start: 20120403, end: 20120410
  15. VENTOLIN [Concomitant]
  16. BROMIDE [Concomitant]
  17. TEMAZEPAM [Concomitant]
  18. GABAPENTIN [Concomitant]
  19. CALCIUM AND COLECALCIFEROL [Concomitant]
  20. IPRATROPIUM BROMIDE [Concomitant]
  21. AMITRIPTYLINE HCL [Concomitant]
  22. SIMVASTATIN [Concomitant]
  23. CONOTRANE [Concomitant]
  24. FERROUS FUMARATE [Concomitant]
  25. SALMETEROL AND FLUTICASONE [Concomitant]
  26. VITAMIN B COMPOUND STRONG [Concomitant]
  27. THIAMINE HCL [Concomitant]

REACTIONS (2)
  - DYSTONIA [None]
  - EYE MOVEMENT DISORDER [None]
